FAERS Safety Report 13819099 (Version 2)
Quarter: 2018Q1

REPORT INFORMATION
  Report Type: Report from Study
  Country: US (occurrence: US)
  Receive Date: 20170731
  Receipt Date: 20180201
  Transmission Date: 20180508
  Serious: No
  Sender: FDA-Public Use
  Company Number: US-EXELIXIS-CABO-17009195

PATIENT
  Age: 67 Year
  Sex: Male

DRUGS (2)
  1. CABOMETYX [Suspect]
     Active Substance: CABOZANTINIB S-MALATE
     Indication: RENAL CANCER
     Dosage: 60 MG, QD
     Route: 048
     Dates: start: 20170323
  2. CABOMETYX [Suspect]
     Active Substance: CABOZANTINIB S-MALATE
     Dosage: 20 MG, QD
     Route: 048

REACTIONS (6)
  - Discomfort [Recovering/Resolving]
  - Dysphagia [Not Recovered/Not Resolved]
  - Decreased appetite [Unknown]
  - Oral pain [Not Recovered/Not Resolved]
  - Diarrhoea [Unknown]
  - Mouth swelling [Unknown]

NARRATIVE: CASE EVENT DATE: 20170804
